FAERS Safety Report 8583373-8 (Version None)
Quarter: 2012Q3

REPORT INFORMATION
  Report Type: 
  Country: None (occurrence: None)
  Receive Date: 20120809
  Receipt Date: 20120802
  Transmission Date: 20120928
  Serious: Yes (Hospitalization)
  Sender: FDA-Public Use
  Company Number: FR-ROCHE-1096916

PATIENT
  Sex: Male
  Weight: 75.5 kg

DRUGS (9)
  1. MABTHERA [Suspect]
     Indication: MALIGNANT LYMPHOID NEOPLASM
     Dates: start: 20120101, end: 20120501
  2. MELPHALAN [Suspect]
     Indication: MALIGNANT LYMPHOID NEOPLASM
     Dates: start: 20120523, end: 20120523
  3. NEXIUM [Concomitant]
     Indication: PROPHYLAXIS AGAINST GASTROINTESTINAL ULCER
     Route: 048
     Dates: start: 20120116
  4. LEUCOVORIN CALCIUM [Concomitant]
     Route: 048
     Dates: start: 20120116
  5. ETOPOSIDE [Suspect]
     Indication: MALIGNANT LYMPHOID NEOPLASM
     Dates: start: 20120519, end: 20120522
  6. MABTHERA [Suspect]
     Route: 042
     Dates: start: 20120518, end: 20120518
  7. VALACYCLOVIR HYDROCHLORIDE [Concomitant]
     Indication: ANTIVIRAL PROPHYLAXIS
     Route: 048
     Dates: start: 20120116
  8. CARMUSTINE [Suspect]
     Indication: MALIGNANT LYMPHOID NEOPLASM
     Dates: start: 20120518, end: 20120518
  9. CYTARABINE [Suspect]
     Indication: MALIGNANT LYMPHOID NEOPLASM
     Dates: start: 20120519, end: 20120522

REACTIONS (2)
  - PYREXIA [None]
  - DIARRHOEA HAEMORRHAGIC [None]
